FAERS Safety Report 12479020 (Version 3)
Quarter: 2016Q3

REPORT INFORMATION
  Report Type: Spontaneous
  Country: DE (occurrence: DE)
  Receive Date: 20160620
  Receipt Date: 20160719
  Transmission Date: 20161109
  Serious: Yes (Life-Threatening, Hospitalization, Other)
  Sender: FDA-Public Use
  Company Number: DE-AMGEN-DEUSP2016077481

PATIENT
  Age: 72 Year
  Sex: Male

DRUGS (10)
  1. KYPROLIS [Suspect]
     Active Substance: CARFILZOMIB
     Indication: PLASMA CELL MYELOMA
     Dosage: 20 MG, UNK
     Route: 065
  2. KYPROLIS [Suspect]
     Active Substance: CARFILZOMIB
     Dosage: 27 MG/M2, D1,2,8,9,15,16
     Route: 042
     Dates: start: 20160405, end: 20160525
  3. ENOXAPARIN [Concomitant]
     Active Substance: ENOXAPARIN
     Dosage: UNK
  4. PREDNISONE. [Concomitant]
     Active Substance: PREDNISONE
  5. DEXAMETHASON [Concomitant]
     Active Substance: DEXAMETHASONE
     Indication: PLASMA CELL MYELOMA
     Dosage: 8 MG, UNK
  6. PANTOPRAZOLE [Concomitant]
     Active Substance: PANTOPRAZOLE SODIUM
     Dosage: 40 MG, UNK
  7. DEXAMETHASON [Concomitant]
     Active Substance: DEXAMETHASONE
     Dosage: 40 MG, QWK
     Dates: start: 2013, end: 20160525
  8. VALACICLOVIR [Concomitant]
     Active Substance: VALACYCLOVIR HYDROCHLORIDE
     Indication: HERPES VIRUS INFECTION
     Dosage: 1 G, DAILY
     Dates: start: 2015, end: 20160614
  9. TORASEMID [Concomitant]
     Active Substance: TORSEMIDE
     Dosage: 10 G, DAILY
     Dates: start: 2016, end: 20160614
  10. XARELTO [Concomitant]
     Active Substance: RIVAROXABAN
     Dosage: 10 MG, UNK

REACTIONS (17)
  - Interstitial lung disease [Recovering/Resolving]
  - Haematoma [Unknown]
  - Blood immunoglobulin G increased [Unknown]
  - Infection [Unknown]
  - Thrombocytopenia [Unknown]
  - Dyspnoea [Unknown]
  - Light chain analysis increased [Unknown]
  - Neutropenia [Unknown]
  - Blood immunoglobulin A decreased [Unknown]
  - White blood cell count decreased [Unknown]
  - Fatigue [Unknown]
  - Asthenia [Unknown]
  - Immunosuppression [Unknown]
  - Blood immunoglobulin M decreased [Unknown]
  - Atypical pneumonia [Unknown]
  - Atrial fibrillation [Unknown]
  - Beta 2 microglobulin increased [Unknown]

NARRATIVE: CASE EVENT DATE: 20160527
